FAERS Safety Report 21832977 (Version 1)
Quarter: 2023Q1

REPORT INFORMATION
  Report Type: Spontaneous
  Country: NL (occurrence: NL)
  Receive Date: 20230106
  Receipt Date: 20230106
  Transmission Date: 20230418
  Serious: Yes (Death, Hospitalization, Other)
  Sender: FDA-Public Use
  Company Number: NL-BAUSCH-BL-2023-000068

PATIENT
  Age: 69 Year
  Sex: Male

DRUGS (4)
  1. ACYCLOVIR [Interacting]
     Active Substance: ACYCLOVIR
     Indication: Herpes simplex encephalitis
     Dosage: HIGH-DOSE 10 MG/KG (500 MG) ON DAY 0
     Route: 065
  2. ACYCLOVIR [Interacting]
     Active Substance: ACYCLOVIR
     Dosage: ON DAY 3
     Route: 065
  3. ACYCLOVIR [Interacting]
     Active Substance: ACYCLOVIR
     Dosage: ON DAY 5
     Route: 065
  4. MYCOPHENOLATE MOFETIL [Interacting]
     Active Substance: MYCOPHENOLATE MOFETIL
     Indication: Prophylaxis against transplant rejection
     Route: 065

REACTIONS (3)
  - Neurotoxicity [Fatal]
  - Drug interaction [Fatal]
  - Overdose [Unknown]
